FAERS Safety Report 6140694-6 (Version None)
Quarter: 2009Q2

REPORT INFORMATION
  Report Type: 
  Country: None (occurrence: None)
  Receive Date: 20090402
  Receipt Date: 20090323
  Transmission Date: 20091009
  Serious: Yes (Hospitalization, Other)
  Sender: FDA-Public Use
  Company Number: US-BIOGENIDEC-2009BI009226

PATIENT
  Age: 35 Year
  Sex: Female

DRUGS (7)
  1. TYSABRI [Suspect]
     Indication: MULTIPLE SCLEROSIS
     Route: 042
     Dates: start: 20080331
  2. BIRTH CONTROL PILLS [Concomitant]
  3. TOPAMAX [Concomitant]
     Dates: start: 20081010
  4. PROVIGIL [Concomitant]
     Dates: start: 20060713
  5. LEXAPRO [Concomitant]
  6. AMANTADINE HCL [Concomitant]
  7. ANTIBIOTICS [Concomitant]

REACTIONS (1)
  - ABORTION SPONTANEOUS [None]
